FAERS Safety Report 23993511 (Version 1)
Quarter: 2024Q2

REPORT INFORMATION
  Report Type: Spontaneous
  Country: US (occurrence: US)
  Receive Date: 20240620
  Receipt Date: 20240620
  Transmission Date: 20240715
  Serious: No
  Sender: FDA-Public Use
  Company Number: US-GSK-US2024071971

PATIENT
  Sex: Female
  Weight: 118 kg

DRUGS (1)
  1. BENLYSTA [Suspect]
     Active Substance: BELIMUMAB
     Indication: Systemic lupus erythematosus
     Dosage: 1200 MG, Q4W
     Dates: start: 20240514

REACTIONS (1)
  - Product dose omission issue [Unknown]
